FAERS Safety Report 23435129 (Version 2)
Quarter: 2024Q2

REPORT INFORMATION
  Report Type: Report from Study
  Country: CN (occurrence: CN)
  Receive Date: 20240123
  Receipt Date: 20240401
  Transmission Date: 20240716
  Serious: Yes (Hospitalization)
  Sender: FDA-Public Use
  Company Number: CN-VER-202400002

PATIENT
  Age: 59 Year
  Sex: Male
  Weight: 82 kg

DRUGS (15)
  1. TRIPTORELIN PAMOATE [Suspect]
     Active Substance: TRIPTORELIN PAMOATE
     Indication: Prostate cancer
     Dosage: (22.5 MG,6 M)
     Route: 030
     Dates: start: 20230907
  2. FENOFIBRATE [Concomitant]
     Active Substance: FENOFIBRATE
     Indication: Hyperlipidaemia
     Dosage: 1 CAPSULE (1 D)
     Route: 048
     Dates: start: 20231106, end: 20231124
  3. IRBESARTAN AND HYDROCHLOROTHIAZIDE [Concomitant]
     Active Substance: HYDROCHLOROTHIAZIDE\IRBESARTAN
     Indication: Hypertension
     Dosage: (150 MG,1 D)
     Route: 048
     Dates: start: 20231015
  4. METOPROLOL TARTRATE [Concomitant]
     Active Substance: METOPROLOL TARTRATE
     Indication: Hypertension
     Dosage: (50 MG,12 HR)
     Route: 048
     Dates: start: 20231015
  5. NIFEDIPINE [Concomitant]
     Active Substance: NIFEDIPINE
     Indication: Hypertension
     Dosage: (30 MG,1 D)
     Route: 048
     Dates: start: 20231008
  6. INSULIN DEGLUDEC AND INSULIN ASPART INJECTION [Concomitant]
     Indication: Type 2 diabetes mellitus
     Dosage: (10 IU,1 D)
     Route: 058
     Dates: start: 20230905
  7. BENAZEPRIL HYDROCHLORIDE [Concomitant]
     Active Substance: BENAZEPRIL HYDROCHLORIDE
     Indication: Hypertension
     Dosage: (10 MG,1 D)
     Route: 048
     Dates: start: 20230826, end: 20231109
  8. BENAZEPRIL HYDROCHLORIDE [Concomitant]
     Active Substance: BENAZEPRIL HYDROCHLORIDE
     Indication: Hypertension
     Dosage: (20 MG,1 D)
     Route: 048
     Dates: start: 20231009, end: 20231014
  9. CEFAZOLIN SODIUM [Concomitant]
     Active Substance: CEFAZOLIN SODIUM
     Indication: Product used for unknown indication
     Dosage: ONCE BY SKIN TEST (0.5 GM)
     Route: 065
     Dates: start: 20230825, end: 20230825
  10. CEFAZOLIN SODIUM [Concomitant]
     Active Substance: CEFAZOLIN SODIUM
     Indication: Product used for unknown indication
     Dosage: ONCE (1 GM)
     Route: 042
     Dates: start: 20230825, end: 20230825
  11. AMOXICILLIN [Concomitant]
     Active Substance: AMOXICILLIN
     Indication: Cough
     Dosage: 1 CAPSULE (8 HR)
     Route: 048
     Dates: start: 20230831, end: 20230901
  12. AMOXICILLIN [Concomitant]
     Active Substance: AMOXICILLIN
     Indication: Cough
     Dosage: ONCE (5 GM)
     Route: 048
     Dates: start: 20231025, end: 20231025
  13. IBUPROFEN SUSTAINED RELEASE CAPSULES [Concomitant]
     Indication: Headache
     Dosage: AS NEEDED (0.3 GM)
     Route: 048
     Dates: start: 20230828
  14. AMLODIPINE BESYLATE AND BENAZEPRIL HYDROCHLORIDE [Concomitant]
     Active Substance: AMLODIPINE BESYLATE\BENAZEPRIL HYDROCHLORIDE
     Indication: Hypertension
     Dosage: 12.5 MG,1 D
     Route: 048
     Dates: start: 202305, end: 20230826
  15. AMLODIPINE BESYLATE [Concomitant]
     Active Substance: AMLODIPINE BESYLATE
     Indication: Hypertension
     Route: 048
     Dates: start: 20230826, end: 20231008

REACTIONS (2)
  - Lacunar infarction [Recovered/Resolved]
  - Meniere^s disease [Recovered/Resolved]

NARRATIVE: CASE EVENT DATE: 20231216
